FAERS Safety Report 6719450-3 (Version None)
Quarter: 2010Q2

REPORT INFORMATION
  Report Type: 
  Country: None (occurrence: None)
  Receive Date: 20100511
  Receipt Date: 20100430
  Transmission Date: 20101027
  Serious: Yes (Hospitalization)
  Sender: FDA-Public Use
  Company Number: US-ROCHE-691034

PATIENT
  Sex: Male
  Weight: 83 kg

DRUGS (5)
  1. BEVACIZUMAB [Suspect]
     Indication: HEAD AND NECK CANCER
     Dosage: LAST DOSE RECEIVED ON 24 FEBRUARY 2010.
     Route: 065
     Dates: start: 20100126
  2. CETUXIMAB [Suspect]
     Indication: HEAD AND NECK CANCER
     Dosage: LAST DOSE RECEIVED ON 24 FEBRUARY 2010. CETUXIMAB PLANNED ON 09 MARCH 2010 WAS HELD.
     Route: 065
     Dates: start: 20100126, end: 20100309
  3. CISPLATIN [Suspect]
     Indication: HEAD AND NECK CANCER
     Dosage: SECOND DOSE RECEIVED ON 24 FEBRUARY 2010 OF (50 MG/M2).
     Route: 065
     Dates: start: 20100126
  4. ZOFRAN [Suspect]
     Indication: DRUG USE FOR UNKNOWN INDICATION
     Route: 065
  5. ZOFRAN [Suspect]
     Route: 065

REACTIONS (10)
  - CONSTIPATION [None]
  - DEHYDRATION [None]
  - DIARRHOEA [None]
  - DYSPHAGIA [None]
  - HAEMOGLOBIN [None]
  - NAUSEA [None]
  - PYREXIA [None]
  - STOMATITIS [None]
  - VOMITING [None]
  - WEIGHT DECREASED [None]
